FAERS Safety Report 7125301-8 (Version None)
Quarter: 2010Q4

REPORT INFORMATION
  Report Type: 
  Country: None (occurrence: None)
  Receive Date: 20101129
  Receipt Date: 20101122
  Transmission Date: 20110411
  Serious: Yes (Other)
  Sender: FDA-Public Use
  Company Number: US-ROXANE LABORATORIES, INC.-2010-RO-01529RO

PATIENT
  Age: 53 Year
  Sex: Male

DRUGS (3)
  1. AZATHIOPRINE [Suspect]
     Indication: COLITIS ULCERATIVE
     Dosage: 300 MG
  2. PREDNISONE [Suspect]
     Indication: COLITIS ULCERATIVE
     Dosage: 20 MG
  3. ALLOPURINOL [Suspect]
     Indication: COLITIS ULCERATIVE
     Dosage: 100 MG

REACTIONS (1)
  - HERPES ZOSTER [None]
